FAERS Safety Report 22186626 (Version 1)
Quarter: 2023Q2

REPORT INFORMATION
  Report Type: Spontaneous
  Country: US (occurrence: None)
  Receive Date: 20230406
  Receipt Date: 20230406
  Transmission Date: 20230721
  Serious: No
  Sender: FDA-Public Use
  Company Number: None

PATIENT
  Age: 57 Year
  Sex: Female

DRUGS (1)
  1. XELODA [Suspect]
     Active Substance: CAPECITABINE
     Dosage: FREQUENCY : TWICE A DAY;?
     Route: 048

REACTIONS (11)
  - Therapy change [None]
  - Headache [None]
  - Therapy interrupted [None]
  - Hepatic enzyme increased [None]
  - Rash [None]
  - Pain in extremity [None]
  - Rash [None]
  - Decreased appetite [None]
  - Fatigue [None]
  - Fine motor skill dysfunction [None]
  - Rash papular [None]

NARRATIVE: CASE EVENT DATE: 20230215
